FAERS Safety Report 4549171-7 (Version None)
Quarter: 2005Q1

REPORT INFORMATION
  Report Type: 
  Country: None (occurrence: None)
  Receive Date: 20050111
  Receipt Date: 20050107
  Transmission Date: 20050727
  Serious: Yes (Death)
  Sender: FDA-Public Use
  Company Number: PHBS2005JP00571

PATIENT
  Age: 51 Year
  Sex: Male

DRUGS (1)
  1. VOLTAREN [Suspect]
     Dosage: 50 MG/DAY
     Route: 054
     Dates: start: 20030401, end: 20030401

REACTIONS (2)
  - INTERSTITIAL LUNG DISEASE [None]
  - MULTI-ORGAN FAILURE [None]
